FAERS Safety Report 10576193 (Version 1)
Quarter: 2014Q4

REPORT INFORMATION
  Report Type: Spontaneous
  Country: US (occurrence: US)
  Receive Date: 20141111
  Receipt Date: 20141111
  Transmission Date: 20150529
  Serious: Yes (Hospitalization)
  Sender: FDA-Public Use
  Company Number: US-B.I. PHARMACEUTICALS,INC./RIDGEFIELD-2014-BI-53101BP

PATIENT
  Age: 73 Year
  Sex: Male
  Weight: 90.5 kg

DRUGS (6)
  1. LOVENOX [Concomitant]
     Active Substance: ENOXAPARIN SODIUM
     Indication: ATRIAL FIBRILLATION
     Dosage: FORMULATION: SUBCUTANEOUS
     Route: 058
     Dates: start: 201408, end: 20140825
  2. PRADAXA [Suspect]
     Active Substance: DABIGATRAN ETEXILATE MESYLATE
     Indication: ATRIAL FIBRILLATION
     Dosage: 300 MG
     Route: 048
     Dates: start: 2010, end: 201407
  3. PRADAXA [Suspect]
     Active Substance: DABIGATRAN ETEXILATE MESYLATE
     Dosage: 300 MG
     Route: 048
     Dates: start: 201410
  4. LORAZEPAM. [Concomitant]
     Active Substance: LORAZEPAM
     Indication: ANXIETY
     Dosage: 1 MG
     Route: 048
     Dates: start: 2006
  5. ESCITALOPRAM [Concomitant]
     Active Substance: ESCITALOPRAM OXALATE
     Indication: DEPRESSION
     Dosage: 10 MG
     Route: 048
     Dates: start: 2013
  6. SPIRONALACTONE [Concomitant]
     Active Substance: SPIRONOLACTONE
     Indication: FLUID RETENTION
     Dosage: 25 MG
     Route: 048
     Dates: start: 2006

REACTIONS (8)
  - Aortic valve disease [Recovered/Resolved]
  - Platelet count decreased [Recovered/Resolved]
  - Incision site haemorrhage [Recovered/Resolved]
  - Vascular graft complication [Recovered/Resolved]
  - Transient ischaemic attack [Recovered/Resolved]
  - Mitral valve disease [Recovered/Resolved]
  - Off label use [Unknown]
  - Tricuspid valve disease [Recovered/Resolved]

NARRATIVE: CASE EVENT DATE: 201406
